FAERS Safety Report 8379176-X (Version None)
Quarter: 2012Q2

REPORT INFORMATION
  Report Type: 
  Country: None (occurrence: None)
  Receive Date: 20120523
  Receipt Date: 20120518
  Transmission Date: 20120825
  Serious: Yes (Other)
  Sender: FDA-Public Use
  Company Number: CA-AMGEN-CANSP2012028870

PATIENT
  Age: 43 Year
  Sex: Male

DRUGS (5)
  1. OMEPRAZOLE (PRISOLEC) [Concomitant]
     Dosage: UNK UNK, QD
  2. VOLTAREN [Concomitant]
     Dosage: 500 MG, QD
  3. ENBREL [Suspect]
     Indication: ANKYLOSING SPONDYLITIS
     Dosage: 50 MG, QWK
     Dates: start: 20091110
  4. LIPITOR [Concomitant]
     Dosage: 20 MG, QD
  5. ESCITALOPRAM [Concomitant]
     Dosage: 20 MG, QD

REACTIONS (5)
  - FATIGUE [None]
  - ASTHENIA [None]
  - SOMNOLENCE [None]
  - APATHY [None]
  - INJECTION SITE PAIN [None]
